FAERS Safety Report 7791919-2 (Version None)
Quarter: 2011Q4

REPORT INFORMATION
  Report Type: 
  Country: None (occurrence: None)
  Receive Date: 20111003
  Receipt Date: 20110927
  Transmission Date: 20120403
  Serious: Yes (Other)
  Sender: FDA-Public Use
  Company Number: US-PFIZER INC-2011230215

PATIENT
  Sex: Female

DRUGS (1)
  1. ADVIL LIQUI-GELS [Suspect]
     Indication: HEADACHE
     Dosage: 200 MG, UNK
     Route: 048
     Dates: start: 20110920, end: 20110927

REACTIONS (5)
  - BACK DISORDER [None]
  - DIARRHOEA [None]
  - GASTRIC HAEMORRHAGE [None]
  - MALAISE [None]
  - NAUSEA [None]
